FAERS Safety Report 25100137 (Version 1)
Quarter: 2025Q1

REPORT INFORMATION
  Report Type: Spontaneous
  Country: US (occurrence: US)
  Receive Date: 20250320
  Receipt Date: 20250320
  Transmission Date: 20250409
  Serious: No
  Sender: DAIICHI
  Company Number: US-DAIICHI SANKYO, INC.-DS-2025-130505-USAA

PATIENT
  Sex: Female

DRUGS (1)
  1. DATROWAY [Suspect]
     Active Substance: DATOPOTAMAB DERUXTECAN-DLNK
     Indication: Breast cancer metastatic
     Route: 065
     Dates: start: 2025

REACTIONS (1)
  - Disease progression [Unknown]

NARRATIVE: CASE EVENT DATE: 20250301
